FAERS Safety Report 4333349-1 (Version None)
Quarter: 2004Q2

REPORT INFORMATION
  Report Type: 
  Country: None (occurrence: None)
  Receive Date: 20040406
  Receipt Date: 20030130
  Transmission Date: 20050107
  Serious: Yes (Hospitalization, Other)
  Sender: FDA-Public Use
  Company Number: US-MERCK-0302USA00064

PATIENT
  Age: 84 Year
  Sex: Male
  Weight: 70 kg

DRUGS (15)
  1. TYLENOL (CAPLET) [Concomitant]
     Route: 065
  2. LIPITOR [Concomitant]
     Indication: BLOOD CHOLESTEROL INCREASED
     Route: 065
     Dates: start: 19980421
  3. LUMIGAN [Concomitant]
     Indication: GLAUCOMA
     Route: 065
  4. CORTICOSTEROIDS (UNSPECIFIED) [Concomitant]
     Route: 051
  5. BETAGAN [Concomitant]
     Indication: GLAUCOMA
     Route: 065
  6. RELAFEN [Concomitant]
     Route: 065
  7. PAXIL [Concomitant]
     Indication: GENERALISED ANXIETY DISORDER
     Route: 065
     Dates: start: 19980421
  8. VIOXX [Suspect]
     Indication: SPINAL COLUMN STENOSIS
     Route: 048
     Dates: start: 19991223
  9. VIOXX [Suspect]
     Route: 048
     Dates: end: 20001101
  10. VIOXX [Suspect]
     Route: 048
  11. VIOXX [Suspect]
     Indication: ARTHRITIS
     Route: 048
     Dates: start: 19991223
  12. VIOXX [Suspect]
     Route: 048
     Dates: end: 20001101
  13. VIOXX [Suspect]
     Route: 048
  14. SAW PALMETTO [Concomitant]
     Route: 065
  15. ULTRAM [Concomitant]
     Route: 065

REACTIONS (27)
  - ABDOMINAL PAIN [None]
  - ANAEMIA [None]
  - BENIGN PROSTATIC HYPERPLASIA [None]
  - BUNDLE BRANCH BLOCK LEFT [None]
  - CARDIAC ARREST [None]
  - CARDIAC FAILURE CONGESTIVE [None]
  - CELLULITIS [None]
  - CEREBRAL ISCHAEMIA [None]
  - CHRONIC OBSTRUCTIVE AIRWAYS DISEASE [None]
  - COLITIS ISCHAEMIC [None]
  - CORONARY ARTERY DISEASE [None]
  - DELIRIUM [None]
  - DEPRESSION [None]
  - DIARRHOEA [None]
  - DRUG HYPERSENSITIVITY [None]
  - GASTROENTERITIS [None]
  - HEADACHE [None]
  - HYPERTENSION [None]
  - INGUINAL HERNIA [None]
  - LIVER FUNCTION TEST ABNORMAL [None]
  - LOCALISED OSTEOARTHRITIS [None]
  - MYOCARDIAL INFARCTION [None]
  - OSTEOPOROSIS [None]
  - PERIORBITAL HAEMATOMA [None]
  - RASH [None]
  - SPINAL COLUMN STENOSIS [None]
  - STAPHYLOCOCCAL SEPSIS [None]
